FAERS Safety Report 7360825-X (Version None)
Quarter: 2011Q1

REPORT INFORMATION
  Report Type: 
  Country: None (occurrence: None)
  Receive Date: 20110318
  Receipt Date: 20110317
  Transmission Date: 20110831
  Serious: Yes (Life-Threatening, Hospitalization)
  Sender: FDA-Public Use
  Company Number: JP-ELI_LILLY_AND_COMPANY-JP201103005179

PATIENT
  Age: 41 Year
  Sex: Male

DRUGS (5)
  1. REMERON [Concomitant]
     Indication: DEPRESSIVE SYMPTOM
     Route: 048
  2. ZYPREXA [Suspect]
     Indication: SCHIZOPHRENIA
     Dosage: 15 MG, DAILY (1/D)
     Route: 048
  3. ZYPREXA [Suspect]
     Dosage: 10 MG, DAILY (1/D)
     Route: 048
     Dates: end: 20110314
  4. GOODMIN [Concomitant]
     Indication: INSOMNIA
     Route: 048
  5. ABILIFY [Concomitant]
     Indication: SCHIZOPHRENIA
     Dosage: 6 MG, DAILY (1/D)
     Route: 048
     Dates: start: 20110314

REACTIONS (7)
  - RESPIRATORY DEPRESSION [None]
  - ALTERED STATE OF CONSCIOUSNESS [None]
  - INCREASED BRONCHIAL SECRETION [None]
  - MUSCLE RIGIDITY [None]
  - DEHYDRATION [None]
  - HYPOTHERMIA [None]
  - BLOOD CREATINE PHOSPHOKINASE INCREASED [None]
